FAERS Safety Report 22234963 (Version 1)
Quarter: 2023Q2

REPORT INFORMATION
  Report Type: Spontaneous
  Country: GB (occurrence: GB)
  Receive Date: 20230420
  Receipt Date: 20230420
  Transmission Date: 20230722
  Serious: Yes (Other)
  Sender: FDA-Public Use
  Company Number: None

PATIENT
  Age: 65 Year
  Sex: Male

DRUGS (16)
  1. CIPROFLOXACIN [Suspect]
     Active Substance: CIPROFLOXACIN
     Dosage: UNK
  2. ALLOPURINOL [Concomitant]
     Active Substance: ALLOPURINOL
     Dosage: 300 MG, 1X/DAY, MORNING AFTER FOOD
     Route: 048
     Dates: end: 20230411
  3. ATORVASTATIN [Concomitant]
     Active Substance: ATORVASTATIN
     Dosage: 40 MG, 1X/DAY, NIGHT
     Route: 048
  4. BETAMETHASONE VALERATE/FUSIDIC ACID [Concomitant]
     Dosage: 1 DF, 2X/DAY
     Route: 062
  5. CLOPIDOGREL [Concomitant]
     Active Substance: CLOPIDOGREL BISULFATE
     Dosage: 75 MG, 1X/DAY, MORNING
     Route: 048
  6. ENOXAPARIN [Concomitant]
     Active Substance: ENOXAPARIN
     Dosage: 40 MG, 1X/DAY
  7. LEVOTHYROXINE [Concomitant]
     Active Substance: LEVOTHYROXINE
     Dosage: 25 MG, 1X/DAY
  8. LINAGLIPTIN [Concomitant]
     Active Substance: LINAGLIPTIN
     Dosage: 5 MG, 1X/DAY, MORNING
     Route: 048
  9. INSULIN ASPART [Concomitant]
     Active Substance: INSULIN ASPART
     Dosage: UNK
  10. SODIUM BICARBONATE [Concomitant]
     Active Substance: SODIUM BICARBONATE
     Dosage: 1000 MG, 3X/DAY, MORNING, LUNCH AND NIGHT
     Route: 048
  11. ANUSOL [BISMUTH OXIDE;MYROXYLON BALSAMUM BALSAM;ZINC OXIDE] [Concomitant]
     Dosage: USE AS DIRECTED
     Route: 062
  12. LANTUS [Concomitant]
     Active Substance: INSULIN GLARGINE
     Dosage: 100UNITS/ML. PT CONFIRMED 12 UNITS IN THE MORNING - CHANGED TO NOVOMIX 30 INSULIN
     Route: 058
  13. DERMOL 200 [Concomitant]
     Dosage: USE AS DIRECTED, LOTION
     Route: 062
  14. COCODAMOL [Concomitant]
     Active Substance: ACETAMINOPHEN\CODEINE PHOSPHATE
     Dosage: 1 DF, 3X/DAY, 30MG/500MG
     Route: 048
  15. SENNA [Concomitant]
     Active Substance: SENNA LEAF\SENNOSIDES\SENNOSIDES A AND B
     Dosage: 15 MG, 1X/DAY, NIGHT
     Route: 048
  16. MINERALS\VITAMINS [Concomitant]
     Active Substance: MINERALS\VITAMINS
     Dosage: 1 DF, 1X/DAY

REACTIONS (1)
  - Clostridium difficile colitis [Recovered/Resolved]
